FAERS Safety Report 13160660 (Version 1)
Quarter: 2017Q1

REPORT INFORMATION
  Report Type: Spontaneous
  Country: ZA (occurrence: ZA)
  Receive Date: 20170129
  Receipt Date: 20170129
  Transmission Date: 20170428
  Serious: Yes (Death, Other)
  Sender: FDA-Public Use
  Company Number: PHHY2017ZA012896

PATIENT
  Sex: Female

DRUGS (1)
  1. ACLASTA [Suspect]
     Active Substance: ZOLEDRONIC ACID
     Indication: OSTEOPOROSIS
     Dosage: UNK
     Route: 041

REACTIONS (6)
  - Headache [Unknown]
  - Myocardial infarction [Fatal]
  - Lung neoplasm malignant [Unknown]
  - Bronchitis [Unknown]
  - Vomiting [Unknown]
  - Nausea [Unknown]
